FAERS Safety Report 8942888 (Version 3)
Quarter: 2013Q2

REPORT INFORMATION
  Report Type: Spontaneous
  Country: US (occurrence: US)
  Receive Date: 20121204
  Receipt Date: 20130613
  Transmission Date: 20140414
  Serious: Yes (Hospitalization, Disabling)
  Sender: FDA-Public Use
  Company Number: US-BAYER-2012-124566

PATIENT
  Age: 42 Year
  Sex: Female
  Weight: 104 kg

DRUGS (16)
  1. YASMIN [Suspect]
     Indication: CONTRACEPTION
     Dosage: UNK
     Dates: start: 1991, end: 2006
  2. SKELAXIN [Concomitant]
  3. PERCOCET [Concomitant]
  4. CELEBREX [Concomitant]
  5. VERAMYST [Concomitant]
  6. METFORMIN [Concomitant]
     Indication: DIABETES MELLITUS
     Dosage: 6 YEARS
  7. BENZONATATE [Concomitant]
  8. AZITHROMYCIN [Concomitant]
  9. ADVAIR [Concomitant]
  10. BYETTA [Concomitant]
  11. DARVOCET [Concomitant]
     Indication: PAIN
  12. DICLOFENAC [Concomitant]
  13. SIMVASTATIN [Concomitant]
     Indication: CHOLESTEROSIS
     Dosage: 5 YEARS
  14. DEXILANT [Concomitant]
     Indication: GASTROOESOPHAGEAL REFLUX DISEASE
     Dosage: 6 MONTHS
  15. NOVOLOG [Concomitant]
     Indication: DIABETES MELLITUS
     Dosage: 1.5 YEARS
  16. LEVEMIR [Concomitant]
     Indication: DIABETES MELLITUS

REACTIONS (7)
  - Deep vein thrombosis [None]
  - Deep vein thrombosis [None]
  - Injury [None]
  - Pain [None]
  - Deformity [None]
  - Anxiety [None]
  - Anhedonia [None]
